FAERS Safety Report 4765364-8 (Version None)
Quarter: 2005Q3

REPORT INFORMATION
  Report Type: 
  Country: None (occurrence: None)
  Receive Date: 20050909
  Receipt Date: 20050706
  Transmission Date: 20060218
  Serious: Yes (Life-Threatening)
  Sender: FDA-Public Use
  Company Number: JP-MERCK-0507USA01206

PATIENT
  Age: 62 Year
  Sex: Female

DRUGS (3)
  1. PRIMAXIN [Suspect]
     Indication: PYREXIA
     Route: 041
     Dates: start: 20050617, end: 20050629
  2. [THERAPY UNSPECIFIED] [Concomitant]
     Route: 041
     Dates: start: 20050619, end: 20050629
  3. FESIN [Concomitant]
     Route: 042
     Dates: start: 20050626, end: 20050629

REACTIONS (3)
  - CONVULSION [None]
  - RESPIRATORY FAILURE [None]
  - TONIC CONVULSION [None]
